FAERS Safety Report 4548202-8 (Version None)
Quarter: 2004Q4

REPORT INFORMATION
  Report Type: 
  Country: None (occurrence: None)
  Receive Date: 20041227
  Receipt Date: 20040930
  Transmission Date: 20050328
  Serious: No
  Sender: FDA-Public Use
  Company Number: 04P-163-0275327-00

PATIENT
  Age: 57 Year
  Sex: Male
  Weight: 77.1115 kg

DRUGS (11)
  1. HUMIRA [Suspect]
     Indication: RHEUMATOID ARTHRITIS
     Dosage: 1 IN 2 WK, SUBCUTANEOUS
     Route: 058
     Dates: start: 20040701
  2. PREDNISONE [Concomitant]
  3. FOLIC ACID [Concomitant]
  4. RANITIDINE [Concomitant]
  5. OMEPRAZOLE [Concomitant]
  6. LORAZEPAM [Concomitant]
  7. MULTI-VITAMINS [Concomitant]
  8. CALCIUM GLUCONATE [Concomitant]
  9. ASCORBIC ACID [Concomitant]
  10. METHOTREXATE SODIUM [Concomitant]
  11. GLUCOSAMINE [Concomitant]

REACTIONS (3)
  - EYE IRRITATION [None]
  - HYPERHIDROSIS [None]
  - VISION BLURRED [None]
